FAERS Safety Report 7103466-1 (Version None)
Quarter: 2010Q4

REPORT INFORMATION
  Report Type: 
  Country: None (occurrence: None)
  Receive Date: 20101115
  Receipt Date: 20101104
  Transmission Date: 20110411
  Serious: Yes (Hospitalization)
  Sender: FDA-Public Use
  Company Number: GB-WATSON-2010-14227

PATIENT
  Age: 27 Year
  Sex: Male

DRUGS (3)
  1. LAMOTRIGINE [Suspect]
     Dosage: UNK
     Route: 065
  2. AMISULPRIDE [Suspect]
     Dosage: UNK
     Route: 065
  3. CLOZARIL [Suspect]
     Indication: SCHIZOPHRENIA
     Dosage: UNK
     Route: 048
     Dates: start: 20000904, end: 20101004

REACTIONS (10)
  - BLOOD CREATINE PHOSPHOKINASE INCREASED [None]
  - BLOOD PROLACTIN INCREASED [None]
  - BODY TEMPERATURE FLUCTUATION [None]
  - BODY TEMPERATURE INCREASED [None]
  - C-REACTIVE PROTEIN INCREASED [None]
  - CHEST PAIN [None]
  - DEHYDRATION [None]
  - DRUG INTERACTION [None]
  - NEUROLEPTIC MALIGNANT SYNDROME [None]
  - RASH [None]
